FAERS Safety Report 5056772-9 (Version None)
Quarter: 2006Q2

REPORT INFORMATION
  Report Type: 
  Country: None (occurrence: None)
  Receive Date: 20060616
  Receipt Date: 20060428
  Transmission Date: 20061013
  Serious: No
  Sender: FDA-Public Use
  Company Number: 2006US000944

PATIENT
  Age: 80 Year
  Sex: Female

DRUGS (3)
  1. VESICARE [Suspect]
     Indication: HYPERTONIC BLADDER
     Dosage: SEE IMAGE
     Route: 048
     Dates: start: 20051117, end: 20051201
  2. TYLENOL (DEXTROMETHORPHAN HYDROBROMIDE, PSEUDOEPPHEDRINE HYDROCHLORIDE [Concomitant]
  3. OSTEO BI-FLEX (GLUCOSAMINE HYDROCHLORIDE, CHONDROITIN SULFATE) [Concomitant]

REACTIONS (1)
  - DRUG INEFFECTIVE [None]
